FAERS Safety Report 9531041 (Version 1)
Quarter: 2013Q3

REPORT INFORMATION
  Report Type: Report from Study
  Country: US (occurrence: US)
  Receive Date: 20130918
  Receipt Date: 20130918
  Transmission Date: 20140515
  Serious: Yes (Other)
  Sender: FDA-Public Use
  Company Number: US-JNJFOC-20130903658

PATIENT
  Sex: Female
  Weight: 47.63 kg

DRUGS (5)
  1. REMICADE [Suspect]
     Indication: RHEUMATOID ARTHRITIS
     Route: 042
     Dates: start: 2012, end: 201302
  2. REMICADE [Suspect]
     Indication: RHEUMATOID ARTHRITIS
     Route: 042
     Dates: start: 2010, end: 2012
  3. METHOTREXATE [Concomitant]
     Indication: RHEUMATOID ARTHRITIS
     Route: 050
     Dates: end: 2010
  4. VITAMIN D [Concomitant]
     Indication: RHEUMATOID ARTHRITIS
     Dosage: REPORTED AS 50,000 MG
     Route: 048
  5. PREDNISONE [Concomitant]
     Indication: RHEUMATOID ARTHRITIS
     Dosage: AS NEEDED, ON AND OFF SINCE 1960^S
     Route: 048

REACTIONS (7)
  - Neuroma [Not Recovered/Not Resolved]
  - Hepatic steatosis [Recovering/Resolving]
  - Osteomyelitis [Recovering/Resolving]
  - Spinal cord compression [Not Recovered/Not Resolved]
  - Tooth infection [Recovered/Resolved]
  - Chest pain [Not Recovered/Not Resolved]
  - Therapeutic response decreased [Recovered/Resolved]
